FAERS Safety Report 7641753-9 (Version None)
Quarter: 2011Q3

REPORT INFORMATION
  Report Type: 
  Country: None (occurrence: None)
  Receive Date: 20110722
  Receipt Date: 20110719
  Transmission Date: 20111222
  Serious: Yes (Hospitalization)
  Sender: FDA-Public Use
  Company Number: 2011SP033683

PATIENT
  Age: 37 Year
  Sex: Male

DRUGS (1)
  1. PREGNYL [Suspect]
     Indication: PRODUCT USED FOR UNKNOWN INDICATION
     Dosage: IM
     Route: 030

REACTIONS (1)
  - CEREBRAL INFARCTION [None]
